FAERS Safety Report 21165942 (Version 1)
Quarter: 2022Q3

REPORT INFORMATION
  Report Type: Spontaneous
  Country: IT (occurrence: IT)
  Receive Date: 20220803
  Receipt Date: 20220803
  Transmission Date: 20221027
  Serious: Yes (Other)
  Sender: FDA-Public Use
  Company Number: IT-EUSA PHARMA (UK) LIMITED-2022IT000334

PATIENT

DRUGS (1)
  1. SYLVANT [Suspect]
     Active Substance: SILTUXIMAB
     Indication: Castleman^s disease
     Dosage: 11 MG/KG, EVERY 3 WEEKS (SIXTH ADMINISTRATION)
     Route: 065
     Dates: start: 20200624

REACTIONS (1)
  - Syncope [Recovered/Resolved]
